FAERS Safety Report 4282213-5 (Version None)
Quarter: 2004Q1

REPORT INFORMATION
  Report Type: 
  Country: None (occurrence: None)
  Receive Date: 20040130
  Receipt Date: 20040107
  Transmission Date: 20041129
  Serious: Yes (Hospitalization)
  Sender: FDA-Public Use
  Company Number: JP-GLAXOSMITHKLINE-B0319295A

PATIENT
  Age: 64 Year
  Sex: Female

DRUGS (1)
  1. PAXIL [Suspect]
     Indication: ADJUSTMENT DISORDER
     Dosage: 10MG PER DAY
     Route: 048
     Dates: start: 20031226

REACTIONS (6)
  - BLOOD CREATINE PHOSPHOKINASE INCREASED [None]
  - BODY TEMPERATURE INCREASED [None]
  - DEPRESSED LEVEL OF CONSCIOUSNESS [None]
  - FACE OEDEMA [None]
  - HAEMOGLOBIN DECREASED [None]
  - NEUROLEPTIC MALIGNANT SYNDROME [None]
